FAERS Safety Report 16215223 (Version 1)
Quarter: 2019Q2

REPORT INFORMATION
  Report Type: Spontaneous
  Country: FR (occurrence: FR)
  Receive Date: 20190419
  Receipt Date: 20190419
  Transmission Date: 20190711
  Serious: Yes (Other)
  Sender: FDA-Public Use
  Company Number: FR-TEVA-2019-FR-1038219

PATIENT
  Age: 77 Year
  Sex: Female

DRUGS (1)
  1. VANCOMYCINE [Suspect]
     Active Substance: VANCOMYCIN
     Indication: INJECTION SITE INFECTION
     Dosage: 2 GRAM DAILY;
     Route: 041
     Dates: start: 20190222, end: 20190226

REACTIONS (1)
  - Rash maculo-papular [Recovered/Resolved]

NARRATIVE: CASE EVENT DATE: 20190226
